FAERS Safety Report 6537895-1 (Version None)
Quarter: 2010Q1

REPORT INFORMATION
  Report Type: 
  Country: None (occurrence: None)
  Receive Date: 20100112
  Receipt Date: 20100112
  Transmission Date: 20100710
  Serious: No
  Sender: FDA-Public Use
  Company Number: None

PATIENT
  Sex: Female

DRUGS (2)
  1. FLUXOTINE 60MG QD PO [Suspect]
     Indication: BULIMIA NERVOSA
     Dosage: 60MG QD PO
     Route: 048
     Dates: start: 20050201, end: 20050401
  2. FLUXOTINE 60MG QD PO [Suspect]
     Indication: MAJOR DEPRESSION
     Dosage: 60MG QD PO
     Route: 048
     Dates: start: 20050201, end: 20050401

REACTIONS (2)
  - DRUG INEFFECTIVE [None]
  - PRODUCT SUBSTITUTION ISSUE [None]
